FAERS Safety Report 14450340 (Version 1)
Quarter: 2018Q1

REPORT INFORMATION
  Report Type: Spontaneous
  Country: TR (occurrence: TR)
  Receive Date: 20180129
  Receipt Date: 20180129
  Transmission Date: 20180509
  Serious: Yes (Hospitalization, Other)
  Sender: FDA-Public Use
  Company Number: TR-TAKEDA-2018TUS001974

PATIENT
  Age: 57 Year
  Sex: Male
  Weight: 74 kg

DRUGS (3)
  1. SALOFALK                           /00747601/ [Concomitant]
     Active Substance: MESALAMINE
     Indication: CROHN^S DISEASE
     Dosage: 3000 MG, UNK
     Route: 048
     Dates: start: 2015
  2. ENTYVIO [Suspect]
     Active Substance: VEDOLIZUMAB
     Indication: CROHN^S DISEASE
     Dosage: 300 MG, UNK
     Route: 042
     Dates: start: 20171114, end: 20171229
  3. IMURAN [Concomitant]
     Active Substance: AZATHIOPRINE
     Indication: CROHN^S DISEASE
     Dosage: 100 MG, UNK
     Route: 048
     Dates: start: 2015, end: 20171229

REACTIONS (2)
  - Peripancreatic fluid collection [Recovered/Resolved]
  - Pancreatitis [Recovered/Resolved]

NARRATIVE: CASE EVENT DATE: 20171212
